FAERS Safety Report 18216176 (Version 2)
Quarter: 2020Q4

REPORT INFORMATION
  Report Type: Report from Study
  Country: None (occurrence: US)
  Receive Date: 20200901
  Receipt Date: 20201019
  Transmission Date: 20210113
  Serious: Yes (Other)
  Sender: FDA-Public Use
  Company Number: US-ABBVIE-20K-163-3447444-00

PATIENT
  Age: 73 Year
  Sex: Male

DRUGS (5)
  1. VENCLEXTA [Suspect]
     Active Substance: VENETOCLAX
     Route: 048
     Dates: start: 2020, end: 2020
  2. VENCLEXTA [Suspect]
     Active Substance: VENETOCLAX
     Indication: CHRONIC LYMPHOCYTIC LEUKAEMIA
     Route: 048
     Dates: start: 20190121
  3. VENCLEXTA [Suspect]
     Active Substance: VENETOCLAX
     Route: 048
     Dates: start: 20200615, end: 2020
  4. VENCLEXTA [Suspect]
     Active Substance: VENETOCLAX
     Route: 048
     Dates: start: 2020
  5. ALEVE [Suspect]
     Active Substance: NAPROXEN SODIUM
     Indication: PRODUCT USED FOR UNKNOWN INDICATION
     Route: 065

REACTIONS (32)
  - Ilium fracture [Not Recovered/Not Resolved]
  - Pruritus [Unknown]
  - Drug intolerance [Recovering/Resolving]
  - Gastrointestinal disorder [Recovered/Resolved]
  - Sinus disorder [Not Recovered/Not Resolved]
  - Tinnitus [Unknown]
  - Burning sensation [Recovering/Resolving]
  - Poor quality sleep [Not Recovered/Not Resolved]
  - Ear pain [Not Recovered/Not Resolved]
  - White blood cell count decreased [Unknown]
  - Upper respiratory tract infection [Recovered/Resolved]
  - Clavicle fracture [Recovering/Resolving]
  - Muscle spasms [Not Recovered/Not Resolved]
  - Pain [Recovering/Resolving]
  - Restless legs syndrome [Unknown]
  - Skin irritation [Unknown]
  - Abdominal pain upper [Recovering/Resolving]
  - Pain [Recovered/Resolved]
  - Abdominal discomfort [Not Recovered/Not Resolved]
  - Sinus headache [Not Recovered/Not Resolved]
  - Hip fracture [Recovering/Resolving]
  - Frequent bowel movements [Recovering/Resolving]
  - Frequent bowel movements [Recovered/Resolved]
  - Ear discomfort [Unknown]
  - Sinusitis [Recovered/Resolved]
  - Bone pain [Not Recovered/Not Resolved]
  - Gastrointestinal disorder [Recovered/Resolved]
  - Dyspnoea [Unknown]
  - Sinus pain [Unknown]
  - Dyschezia [Recovered/Resolved]
  - Ear infection [Recovered/Resolved]
  - Gastric disorder [Unknown]

NARRATIVE: CASE EVENT DATE: 2019
